FAERS Safety Report 4361033-7 (Version None)
Quarter: 2004Q2

REPORT INFORMATION
  Report Type: 
  Country: None (occurrence: None)
  Receive Date: 20040517
  Receipt Date: 20030918
  Transmission Date: 20050107
  Serious: No
  Sender: FDA-Public Use
  Company Number: 2003-106480-NL

PATIENT
  Age: 59 Year
  Sex: Male

DRUGS (2)
  1. MIRTAZAPINE [Suspect]
     Indication: ANXIETY
     Dosage: 15 MG
     Dates: start: 20020628, end: 20020713
  2. MIRTAZAPINE [Suspect]
     Indication: DEPRESSION
     Dosage: 15 MG
     Dates: start: 20020628, end: 20020713

REACTIONS (21)
  - AGGRESSION [None]
  - ANGER [None]
  - ARTHROPOD BITE [None]
  - BLOOD PRESSURE INCREASED [None]
  - CONTUSION [None]
  - DISTURBANCE IN ATTENTION [None]
  - ERYTHEMA [None]
  - FATIGUE [None]
  - HALLUCINATION [None]
  - HEART RATE INCREASED [None]
  - INJECTION SITE HAEMORRHAGE [None]
  - IRRITABILITY [None]
  - LIBIDO DECREASED [None]
  - MANIA [None]
  - PHOTOPSIA [None]
  - PSYCHOMOTOR HYPERACTIVITY [None]
  - RAPID EYE MOVEMENTS SLEEP ABNORMAL [None]
  - RESTLESSNESS [None]
  - SLEEP DISORDER [None]
  - THINKING ABNORMAL [None]
  - URTICARIA [None]
